FAERS Safety Report 20952397 (Version 3)
Quarter: 2024Q4

REPORT INFORMATION
  Report Type: Spontaneous
  Country: US (occurrence: US)
  Receive Date: 20220613
  Receipt Date: 20241217
  Transmission Date: 20250115
  Serious: No
  Sender: PFIZER
  Company Number: US-PFIZER INC-2021869009

PATIENT
  Age: 78 Year
  Sex: Female

DRUGS (3)
  1. EUCRISA [Suspect]
     Active Substance: CRISABOROLE
     Indication: Skin exfoliation
     Dosage: UNK
  2. EUCRISA [Suspect]
     Active Substance: CRISABOROLE
     Indication: Skin haemorrhage
  3. EUCRISA [Suspect]
     Active Substance: CRISABOROLE
     Indication: Skin fissures

REACTIONS (6)
  - Product dose omission issue [Unknown]
  - Dry skin [Unknown]
  - Skin exfoliation [Unknown]
  - Skin induration [Unknown]
  - Foot deformity [Unknown]
  - Localised infection [Unknown]
